FAERS Safety Report 8786948 (Version 2)
Quarter: 2012Q4

REPORT INFORMATION
  Report Type: 
  Country: DE (occurrence: DE)
  Receive Date: 20120914
  Receipt Date: 20121221
  Transmission Date: 20130627
  Serious: Yes (Hospitalization)
  Sender: FDA-Public Use
  Company Number: DE-AMGEN-DEUCT2012058089

PATIENT
  Sex: Female

DRUGS (18)
  1. PEGFILGRASTIM [Suspect]
     Indication: B-CELL LYMPHOMA
     Dosage: UNK
     Route: 058
     Dates: start: 20120429
  2. PEGFILGRASTIM [Suspect]
     Indication: INFECTION PROPHYLAXIS
  3. RITUXIMAB [Concomitant]
     Indication: B-CELL LYMPHOMA
     Dosage: 742.5 mg, q2wk
     Route: 042
     Dates: start: 20120425, end: 20120626
  4. PREDNISOLONE [Concomitant]
     Indication: B-CELL LYMPHOMA
     Dosage: 100 mg, UNK
     Route: 051
     Dates: start: 20120426, end: 20120430
  5. VINCRISTINE [Concomitant]
     Indication: B-CELL LYMPHOMA
     Dosage: 3.94 mg, q2wk
     Route: 042
     Dates: start: 20120426
  6. CYCLOPHOSPHAMIDE [Concomitant]
     Indication: B-CELL LYMPHOMA
     Dosage: 1493 mg, q2wk
     Route: 042
     Dates: start: 20120426
  7. DOXORUBICIN [Concomitant]
     Indication: B-CELL LYMPHOMA
     Dosage: 100 mg, q2wk
     Route: 042
     Dates: start: 20120426
  8. NEBIVOLOL [Concomitant]
     Indication: ATRIAL FIBRILLATION
     Dosage: 2.5 mg, qd
     Route: 048
     Dates: start: 20120412
  9. LEVOTHYROXINE [Concomitant]
     Indication: HYPOTHYROIDISM
     Dosage: 100 mug, qd
     Route: 048
     Dates: start: 20120412
  10. SIMVASTATIN [Concomitant]
     Indication: ARTERIOSCLEROSIS CORONARY ARTERY
     Dosage: 20 mg, qd
     Route: 048
     Dates: start: 20120412
  11. TORASEMIDE [Concomitant]
     Indication: HYPERTENSION
     Dosage: 5 mg, qd
     Route: 048
     Dates: start: 20120412
  12. ASPIRIN [Concomitant]
     Indication: ARTERIOSCLEROSIS CORONARY ARTERY
     Dosage: 100 mg, qd
     Route: 048
     Dates: start: 20120412
  13. TIOTROPIUM BROMIDE [Concomitant]
     Indication: CHRONIC OBSTRUCTIVE PULMONARY DISEASE
     Dosage: 18 mug, qd
     Route: 048
     Dates: start: 20120412
  14. RAMIPRIL [Concomitant]
     Indication: HYPERTENSION
     Dosage: 5 mg, qd
     Route: 048
     Dates: start: 20120412
  15. SULFAMETHOXAZOLE AND TRIMETHOPRIM [Concomitant]
     Indication: PROPHYLAXIS
     Dosage: 960 mg, UNK
     Route: 051
     Dates: start: 20120412
  16. ACICLOVIR [Concomitant]
     Indication: ANTIVIRAL PROPHYLAXIS
     Dosage: 400 mg, qid
     Route: 051
     Dates: start: 20120412
  17. LEVOFLOXACIN [Concomitant]
     Indication: INFECTION PROPHYLAXIS
     Dosage: 500 mg, qd
     Route: 048
     Dates: start: 20120616, end: 20120706
  18. PANTOPRAZOLE [Concomitant]
     Indication: PROPHYLAXIS AGAINST GASTROINTESTINAL ULCER
     Dosage: 40 mg, bid
     Route: 051
     Dates: start: 20120412

REACTIONS (1)
  - Febrile neutropenia [Recovered/Resolved]
